FAERS Safety Report 15115672 (Version 1)
Quarter: 2018Q3

REPORT INFORMATION
  Report Type: Spontaneous
  Country: DE (occurrence: DE)
  Receive Date: 20180706
  Receipt Date: 20180706
  Transmission Date: 20181010
  Serious: Yes (Death, Hospitalization, Other)
  Sender: FDA-Public Use
  Company Number: DE-SA-2018SA160899

PATIENT
  Age: 74 Year
  Sex: Male

DRUGS (34)
  1. OXALIPLATIN. [Suspect]
     Active Substance: OXALIPLATIN
     Dosage: 140 MG, QOW
     Route: 042
     Dates: start: 20151014, end: 20151014
  2. 5?FLUOROURACIL [FLUOROURACIL] [Suspect]
     Active Substance: FLUOROURACIL
     Dosage: 675 MG, QOW
     Route: 040
     Dates: start: 20151014, end: 20151118
  3. ATOSIL [PROMETHAZINE HYDROCHLORIDE] [Concomitant]
     Indication: HYPERTENSION
     Route: 042
     Dates: start: 20160302, end: 20160320
  4. ATOSIL [PROMETHAZINE HYDROCHLORIDE] [Concomitant]
     Dosage: UNK
  5. OXALIPLATIN. [Suspect]
     Active Substance: OXALIPLATIN
     Dosage: 140 MG, QOW
     Route: 042
     Dates: start: 20151118, end: 20151118
  6. OXALIPLATIN. [Suspect]
     Active Substance: OXALIPLATIN
     Dosage: 140 MG, QOW
     Route: 042
     Dates: start: 20151202, end: 20151202
  7. 5?FLUOROURACIL [FLUOROURACIL] [Suspect]
     Active Substance: FLUOROURACIL
     Dosage: 675 MG, QOW
     Route: 040
     Dates: start: 20151028, end: 20151028
  8. 5?FLUOROURACIL [FLUOROURACIL] [Suspect]
     Active Substance: FLUOROURACIL
     Dosage: 675 MG, QOW
     Route: 040
     Dates: start: 20151118, end: 20151118
  9. 5?FLUOROURACIL [FLUOROURACIL] [Suspect]
     Active Substance: FLUOROURACIL
     Dosage: 575 MG, QOW
     Route: 040
     Dates: start: 20160111, end: 20160111
  10. PANITUMUMAB [Concomitant]
     Active Substance: PANITUMUMAB
     Indication: COLORECTAL CANCER
     Dosage: ONCE
     Route: 042
     Dates: start: 20151028, end: 20151028
  11. DERMATOP [Concomitant]
     Active Substance: PREDNICARBATE
     Indication: ERYTHEMA
     Route: 065
     Dates: start: 20151103, end: 20151221
  12. OXALIPLATIN. [Suspect]
     Active Substance: OXALIPLATIN
     Dosage: 140 MG, QOW
     Route: 042
     Dates: start: 20151221, end: 20151221
  13. OXALIPLATIN. [Suspect]
     Active Substance: OXALIPLATIN
     Dosage: 120 MG, QOW
     Route: 042
     Dates: start: 20160111, end: 20160111
  14. 5?FLUOROURACIL [FLUOROURACIL] [Suspect]
     Active Substance: FLUOROURACIL
     Dosage: 3900 MG, QOW
     Route: 041
     Dates: start: 20151202, end: 20151223
  15. CIPROBAY [CIPROFLOXACIN HYDROCHLORIDE] [Concomitant]
     Active Substance: CIPROFLOXACIN
     Indication: URINARY TRACT INFECTION
     Dosage: 500 MG, QD
     Route: 048
     Dates: start: 20160209, end: 20160221
  16. MCP [METOCLOPRAMIDE] [Concomitant]
     Indication: NAUSEA
     Dosage: 10 MG
     Route: 048
     Dates: start: 20150916, end: 201601
  17. BEVACIZUMAB. [Suspect]
     Active Substance: BEVACIZUMAB
     Dosage: 425 MG
     Route: 042
     Dates: start: 20160111, end: 20160111
  18. CLONIDIN [Concomitant]
     Active Substance: CLONIDINE
     Indication: HYPERTENSION
     Dosage: 0.15 MG
     Route: 042
     Dates: start: 20160229
  19. FOLINIC ACID [Concomitant]
     Active Substance: LEUCOVORIN
     Dosage: 670 MG, QOW
     Route: 042
     Dates: start: 20151014, end: 20151018
  20. LOPERAMID [Concomitant]
     Active Substance: LOPERAMIDE
     Indication: DIARRHOEA
     Dosage: 99 MG
     Route: 048
     Dates: start: 20160111
  21. NADIXA [Concomitant]
     Indication: ERYTHEMA
     Route: 065
     Dates: start: 20151103, end: 20151221
  22. CLEXANE [Concomitant]
     Active Substance: ENOXAPARIN SODIUM
     Indication: THROMBOSIS
     Route: 058
     Dates: start: 20160203, end: 20160213
  23. OXALIPLATIN. [Suspect]
     Active Substance: OXALIPLATIN
     Indication: COLORECTAL CANCER
     Dosage: 140 MG, QOW
     Route: 042
     Dates: start: 20150923, end: 20150923
  24. BEVACIZUMAB. [Suspect]
     Active Substance: BEVACIZUMAB
     Indication: COLORECTAL CANCER
     Dosage: 450 MG, QOW
     Route: 042
     Dates: start: 20151118, end: 20151118
  25. 5?FLUOROURACIL [FLUOROURACIL] [Suspect]
     Active Substance: FLUOROURACIL
     Dosage: 4000 MG, QOW
     Route: 041
     Dates: start: 20150923, end: 20151120
  26. 5?FLUOROURACIL [FLUOROURACIL] [Suspect]
     Active Substance: FLUOROURACIL
     Dosage: 650 MG, QOW
     Route: 040
     Dates: start: 20151202, end: 20151221
  27. PANTOZOL [PANTOPRAZOLE SODIUM SESQUIHYDRATE] [Concomitant]
     Route: 048
     Dates: start: 20150923, end: 20160316
  28. METOPROLOL. [Concomitant]
     Active Substance: METOPROLOL
     Dosage: 50 MG, QD
     Route: 048
     Dates: start: 20160129, end: 20160203
  29. OXALIPLATIN. [Suspect]
     Active Substance: OXALIPLATIN
     Dosage: 140 MG, QOW
     Route: 042
     Dates: start: 20151028, end: 20151028
  30. 5?FLUOROURACIL [FLUOROURACIL] [Suspect]
     Active Substance: FLUOROURACIL
     Dosage: 3400 MG, QOW
     Route: 041
     Dates: start: 20160111, end: 20160113
  31. ASPIRIN. [Concomitant]
     Active Substance: ASPIRIN
     Indication: CEREBROVASCULAR DISORDER
     Route: 048
     Dates: start: 2009, end: 20160313
  32. 5?FLUOROURACIL [FLUOROURACIL] [Suspect]
     Active Substance: FLUOROURACIL
     Indication: COLORECTAL CANCER
     Dosage: 650 MG, QOW
     Route: 040
     Dates: start: 20150923, end: 20150923
  33. FOLINIC ACID [Concomitant]
     Active Substance: LEUCOVORIN
     Indication: COLORECTAL CANCER
     Dosage: 400 UNK
     Route: 042
     Dates: start: 20150923, end: 20160111
  34. TAVOR (LORAZEPAM) [Concomitant]
     Active Substance: LORAZEPAM
     Indication: SURGERY
     Route: 048
     Dates: start: 20160228, end: 20160316

REACTIONS (15)
  - Abscess [Fatal]
  - Anorectal infection [Not Recovered/Not Resolved]
  - Subileus [Recovered/Resolved]
  - Haemorrhage [Unknown]
  - Faecaloma [Recovered/Resolved]
  - Proctalgia [Not Recovered/Not Resolved]
  - Faecaloma [Recovered/Resolved]
  - Wound haemorrhage [Not Recovered/Not Resolved]
  - Pyrexia [Not Recovered/Not Resolved]
  - Hypertension [Not Recovered/Not Resolved]
  - Delirium [Unknown]
  - Wound infection [Not Recovered/Not Resolved]
  - Anaemia [Unknown]
  - Ascites [Not Recovered/Not Resolved]
  - Haemoglobin decreased [Not Recovered/Not Resolved]

NARRATIVE: CASE EVENT DATE: 20151130
